FAERS Safety Report 13667640 (Version 1)
Quarter: 2017Q2

REPORT INFORMATION
  Report Type: Spontaneous
  Country: US (occurrence: US)
  Receive Date: 20170620
  Receipt Date: 20170620
  Transmission Date: 20170830
  Serious: No
  Sender: FDA-Public Use
  Company Number: US-ALKABELLO-2017AA001961

PATIENT
  Age: 30 Year
  Sex: Male

DRUGS (6)
  1. DAE BULK (239) SORGHUM HALEPENSE [Suspect]
     Active Substance: SORGHUM HALEPENSE POLLEN
  2. IVA XANTHIFOLIA POLLEN [Suspect]
     Active Substance: CYCLACHAENA XANTHIFOLIA POLLEN
  3. DAE BULK (225) PHLEUM PRATENSE [Suspect]
     Active Substance: PHLEUM PRATENSE POLLEN
  4. DAE BULK (302) AMBROSIA ARTEMISIIFOLIA [Suspect]
     Active Substance: AMBROSIA ARTEMISIIFOLIA POLLEN
  5. DAE BULK (362) AMARANTHUS RETROFLEXUS [Suspect]
     Active Substance: AMARANTHUS RETROFLEXUS POLLEN
  6. DAE BULK (168) FRAXINUS AMERICANA [Suspect]
     Active Substance: FRAXINUS AMERICANA POLLEN

REACTIONS (1)
  - Throat irritation [Recovered/Resolved]
